FAERS Safety Report 7505437-X (Version None)
Quarter: 2011Q2

REPORT INFORMATION
  Report Type: 
  Country: None (occurrence: None)
  Receive Date: 20110526
  Receipt Date: 20110523
  Transmission Date: 20111010
  Serious: No
  Sender: FDA-Public Use
  Company Number: US-PFIZER INC-2011111644

PATIENT
  Age: 40 Year
  Sex: Male
  Weight: 151.93 kg

DRUGS (1)
  1. CHANTIX [Suspect]
     Dosage: UNK
     Dates: start: 20110401

REACTIONS (1)
  - DRUG INEFFECTIVE [None]
